FAERS Safety Report 21804932 (Version 1)
Quarter: 2023Q1

REPORT INFORMATION
  Report Type: Spontaneous
  Country: FR (occurrence: FR)
  Receive Date: 20230102
  Receipt Date: 20230102
  Transmission Date: 20230417
  Serious: No
  Sender: FDA-Public Use
  Company Number: FR-PADAGIS-2022PAD01190

PATIENT

DRUGS (3)
  1. CLOBETASOL PROPIONATE [Suspect]
     Active Substance: CLOBETASOL PROPIONATE
     Indication: Herpes gestationis
     Dosage: 30 G, QD (30 GRAMS/DAY)
     Route: 065
  2. CLOBETASOL PROPIONATE [Suspect]
     Active Substance: CLOBETASOL PROPIONATE
     Dosage: 30 G PER DAY (AFTER DELIVERY)
  3. PREDNISONE [Concomitant]
     Active Substance: PREDNISONE
     Indication: Herpes gestationis
     Dosage: 1 MG/KG
     Route: 065

REACTIONS (2)
  - Drug ineffective [Unknown]
  - Maternal exposure during pregnancy [Unknown]
